FAERS Safety Report 5216596-6 (Version None)
Quarter: 2007Q1

REPORT INFORMATION
  Report Type: 
  Country: None (occurrence: None)
  Receive Date: 20070118
  Receipt Date: 20070103
  Transmission Date: 20070707
  Serious: Yes (Death)
  Sender: FDA-Public Use
  Company Number: 2007SP000137

PATIENT
  Age: 50 Year
  Sex: Male
  Weight: 99 kg

DRUGS (5)
  1. PEG-INTRON [Suspect]
     Indication: HEPATITIS C
     Dosage: 150 MCG; QW; SC
     Route: 058
     Dates: start: 20061030, end: 20070101
  2. COPEGUS [Suspect]
     Indication: HEPATITIS C
     Dosage: SEE IMAGE, PO
     Route: 048
     Dates: start: 20061030, end: 20061228
  3. COPEGUS [Suspect]
     Indication: HEPATITIS C
     Dosage: SEE IMAGE, PO
     Route: 048
     Dates: start: 20061229, end: 20070101
  4. AZITHROMYCIN [Suspect]
     Indication: BRONCHITIS
     Dosage: 500 MG; QD
     Dates: start: 20061221, end: 20061223
  5. METHADONE HCL [Suspect]
     Dosage: 140 MG; PO
     Route: 048
     Dates: start: 19940101, end: 20070101

REACTIONS (2)
  - ANAEMIA [None]
  - HEPATITIS C [None]
